FAERS Safety Report 24460776 (Version 1)
Quarter: 2024Q4

REPORT INFORMATION
  Report Type: Report from Study
  Country: US (occurrence: US)
  Receive Date: 20241018
  Receipt Date: 20241018
  Transmission Date: 20250115
  Serious: No
  Sender: ROCHE
  Company Number: US-ROCHE-3568140

PATIENT
  Age: 75 Year
  Sex: Female

DRUGS (13)
  1. RITUXAN [Suspect]
     Active Substance: RITUXIMAB
     Indication: Rheumatoid arthritis
     Dosage: DAY 1 AND DAY 15 EVERY 6 MONTHS
     Route: 042
     Dates: start: 20210611, end: 20220611
  2. CALCIUM CARBONATE [Concomitant]
     Active Substance: CALCIUM CARBONATE
  3. ALENDRONATE [Concomitant]
     Active Substance: ALENDRONATE SODIUM
  4. AMOXICILLIN [Concomitant]
     Active Substance: AMOXICILLIN
  5. AZELASTINE [Concomitant]
     Active Substance: AZELASTINE
  6. CEPHALEXIN [Concomitant]
     Active Substance: CEPHALEXIN
  7. VITAMIN D3 [Concomitant]
     Active Substance: CHOLECALCIFEROL
  8. DOXYCYCLINE [Concomitant]
     Active Substance: DOXYCYCLINE
  9. FERROUS SULFATE [Concomitant]
     Active Substance: FERROUS SULFATE
  10. FOLIC ACID [Concomitant]
     Active Substance: FOLIC ACID
  11. OMEPRAZOLE [Concomitant]
     Active Substance: OMEPRAZOLE
  12. NALOXONE [Concomitant]
     Active Substance: NALOXONE
  13. LEVOTHYROXINE [Concomitant]
     Active Substance: LEVOTHYROXINE

REACTIONS (1)
  - Arthritis [Not Recovered/Not Resolved]
